FAERS Safety Report 19379277 (Version 1)
Quarter: 2021Q2

REPORT INFORMATION
  Report Type: Spontaneous
  Country: US (occurrence: US)
  Receive Date: 20210607
  Receipt Date: 20210607
  Transmission Date: 20210717
  Serious: Yes (Hospitalization)
  Sender: FDA-Public Use
  Company Number: US-ROCHE-2840400

PATIENT
  Sex: Male

DRUGS (5)
  1. EVRYSDI [Suspect]
     Active Substance: RISDIPLAM
  2. EVRYSDI [Suspect]
     Active Substance: RISDIPLAM
     Indication: PRODUCT USED FOR UNKNOWN INDICATION
     Dosage: YES
     Route: 048
     Dates: start: 20210224
  3. EVRYSDI [Suspect]
     Active Substance: RISDIPLAM
  4. EVRYSDI [Suspect]
     Active Substance: RISDIPLAM
  5. EVRYSDI [Suspect]
     Active Substance: RISDIPLAM

REACTIONS (2)
  - Pneumonia [Not Recovered/Not Resolved]
  - Viral infection [Not Recovered/Not Resolved]
